FAERS Safety Report 17210590 (Version 3)
Quarter: 2020Q1

REPORT INFORMATION
  Report Type: Report from Study
  Country: JP (occurrence: JP)
  Receive Date: 20191227
  Receipt Date: 20200210
  Transmission Date: 20200409
  Serious: Yes (Death, Hospitalization, Other)
  Sender: FDA-Public Use
  Company Number: JP-BRISTOL-MYERS SQUIBB COMPANY-BMS-2019-005532

PATIENT
  Age: 63 Year
  Sex: Male
  Weight: 53.6 kg

DRUGS (2)
  1. IPILIMUMAB [Suspect]
     Active Substance: IPILIMUMAB
     Indication: METASTATIC RENAL CELL CARCINOMA
     Dosage: 68 MILLIGRAM, Q3WK
     Route: 041
     Dates: start: 20181003, end: 20181226
  2. NIVOLUMAB [Suspect]
     Active Substance: NIVOLUMAB
     Indication: METASTATIC RENAL CELL CARCINOMA
     Dosage: 240 MILLIGRAM, Q3WK
     Route: 041
     Dates: start: 20181003, end: 20181226

REACTIONS (8)
  - Malignant neoplasm progression [Fatal]
  - Ileus [Unknown]
  - Intentional product use issue [Unknown]
  - Hypothyroidism [Recovered/Resolved]
  - Hypopituitarism [Recovered/Resolved]
  - Hypophysitis [Unknown]
  - Small intestine carcinoma [Unknown]
  - Liver disorder [Recovering/Resolving]

NARRATIVE: CASE EVENT DATE: 20181205
